FAERS Safety Report 5513555-0 (Version None)
Quarter: 2007Q4

REPORT INFORMATION
  Report Type: 
  Country: None (occurrence: None)
  Receive Date: 20071108
  Receipt Date: 20071024
  Transmission Date: 20080405
  Serious: Yes (Hospitalization)
  Sender: FDA-Public Use
  Company Number: 310002L07JPN

PATIENT
  Age: 34 Year
  Sex: Female

DRUGS (3)
  1. FOLLITROPIN ALPHA (FOLLITROPIN ALFA) [Suspect]
     Indication: OVULATION INDUCTION
     Dosage: 1125 IU
  2. MENOTROPINS [Suspect]
     Indication: OVULATION INDUCTION
     Dosage: 1950 IU
  3. CHORIONIC GONADTROPIN [Suspect]
     Indication: OVULATION INDUCTION
     Dosage: 1000 IU

REACTIONS (10)
  - ASCITES [None]
  - DRUG EXPOSURE BEFORE PREGNANCY [None]
  - FIBRIN D DIMER INCREASED [None]
  - FIBRIN DEGRADATION PRODUCTS INCREASED [None]
  - HEPATIC ENZYME INCREASED [None]
  - INFLAMMATION [None]
  - JUGULAR VEIN THROMBOSIS [None]
  - MULTIPLE PREGNANCY [None]
  - OVARIAN HYPERSTIMULATION SYNDROME [None]
  - PYREXIA [None]
